FAERS Safety Report 21675908 (Version 1)
Quarter: 2022Q4

REPORT INFORMATION
  Report Type: Spontaneous
  Country: US (occurrence: US)
  Receive Date: 20221202
  Receipt Date: 20221202
  Transmission Date: 20230112
  Serious: No
  Sender: FDA-Public Use
  Company Number: US-BRISTOL-MYERS SQUIBB COMPANY-2022-147221

PATIENT
  Age: 66 Year
  Sex: Male

DRUGS (1)
  1. REVLIMID [Suspect]
     Active Substance: LENALIDOMIDE
     Indication: Mantle cell lymphoma
     Dosage: FREQ : 1 QD FOR 21 DAYS ON AND 7 DAYS OFF
     Route: 065
     Dates: start: 20221118

REACTIONS (3)
  - Muscle spasms [Unknown]
  - Constipation [Unknown]
  - Heart rate increased [Unknown]
